FAERS Safety Report 11655204 (Version 1)
Quarter: 2015Q4

REPORT INFORMATION
  Report Type: Spontaneous
  Country: US (occurrence: US)
  Receive Date: 20151023
  Receipt Date: 20151023
  Transmission Date: 20160304
  Serious: No
  Sender: FDA-Public Use
  Company Number: US-BIOGENIDEC-2015BI141023

PATIENT
  Sex: Female

DRUGS (2)
  1. MORPHINE [Concomitant]
     Active Substance: MORPHINE
  2. TYSABRI [Suspect]
     Active Substance: NATALIZUMAB
     Indication: MULTIPLE SCLEROSIS
     Route: 042
     Dates: start: 20121207

REACTIONS (8)
  - Confusional state [Not Recovered/Not Resolved]
  - Memory impairment [Not Recovered/Not Resolved]
  - Loss of consciousness [Recovered/Resolved]
  - Speech disorder [Not Recovered/Not Resolved]
  - Mobility decreased [Not Recovered/Not Resolved]
  - Progressive multiple sclerosis [Not Recovered/Not Resolved]
  - Asthma [Not Recovered/Not Resolved]
  - Tooth loss [Unknown]
